FAERS Safety Report 24049786 (Version 1)
Quarter: 2024Q3

REPORT INFORMATION
  Report Type: Spontaneous
  Country: HR (occurrence: HR)
  Receive Date: 20240704
  Receipt Date: 20240704
  Transmission Date: 20241017
  Serious: Yes (Hospitalization)
  Sender: TEVA
  Company Number: None

PATIENT
  Age: 61 Year
  Sex: Male
  Weight: 110 kg

DRUGS (1)
  1. AZITHROMYCIN [Suspect]
     Active Substance: AZITHROMYCIN
     Indication: Sinusitis
     Route: 048
     Dates: start: 20240529, end: 20240531

REACTIONS (6)
  - Muscle spasms [Recovering/Resolving]
  - Eyelid rash [Recovering/Resolving]
  - Asthenia [Recovering/Resolving]
  - Vomiting [Recovering/Resolving]
  - Rash [Recovering/Resolving]
  - Swollen tongue [Recovering/Resolving]

NARRATIVE: CASE EVENT DATE: 20240531
